FAERS Safety Report 16531216 (Version 1)
Quarter: 2019Q3

REPORT INFORMATION
  Report Type: Spontaneous
  Country: GB (occurrence: GB)
  Receive Date: 20190704
  Receipt Date: 20190704
  Transmission Date: 20191004
  Serious: Yes (Disabling)
  Sender: FDA-Public Use
  Company Number: GB-009507513-1907GBR001136

PATIENT
  Age: 81 Year
  Sex: Female
  Weight: 83 kg

DRUGS (12)
  1. PEMBROLIZUMAB. [Suspect]
     Active Substance: PEMBROLIZUMAB
     Indication: METASTATIC MALIGNANT MELANOMA
     Dates: start: 20180601
  2. HYPROMELLOSE [Concomitant]
     Active Substance: HYPROMELLOSES
     Dosage: UNK
  3. DIPROBASE [Concomitant]
     Active Substance: CHLOROCRESOL
     Dosage: UNK
  4. ALLOPURINOL. [Concomitant]
     Active Substance: ALLOPURINOL
     Dosage: UNK
  5. LISINOPRIL. [Concomitant]
     Active Substance: LISINOPRIL
     Dosage: UNK
  6. PROCHLORPERAZINE. [Concomitant]
     Active Substance: PROCHLORPERAZINE
     Dosage: UNK
  7. LATANOPROST. [Concomitant]
     Active Substance: LATANOPROST
     Dosage: UNK
  8. CHLORPHENAMINE [Concomitant]
     Active Substance: CHLORPHENIRAMINE MALEATE
     Dosage: UNK
  9. LORATADINE. [Concomitant]
     Active Substance: LORATADINE
     Dosage: UNK
  10. BISOPROLOL [Concomitant]
     Active Substance: BISOPROLOL
     Dosage: UNK
  11. ADCAL-D3 [Concomitant]
     Active Substance: CALCIUM CARBONATE\CHOLECALCIFEROL
     Dosage: UNK
  12. TOLTERODINE [Concomitant]
     Active Substance: TOLTERODINE
     Dosage: UNK

REACTIONS (3)
  - Skin ulcer [Recovering/Resolving]
  - Paronychia [Unknown]
  - Cellulitis [Recovering/Resolving]

NARRATIVE: CASE EVENT DATE: 201902
